FAERS Safety Report 8467884-1 (Version None)
Quarter: 2012Q2

REPORT INFORMATION
  Report Type: 
  Country: None (occurrence: None)
  Receive Date: 20120626
  Receipt Date: 20120621
  Transmission Date: 20120825
  Serious: Yes (Life-Threatening, Hospitalization, Other)
  Sender: FDA-Public Use
  Company Number: US-SANOFI-AVENTIS-2012SA037419

PATIENT
  Age: 57 Year
  Sex: Female
  Weight: 90 kg

DRUGS (5)
  1. DOCETAXEL [Suspect]
     Dosage: FREQUENCY: OVER 01 HOUR ON DAY 01; CYCLE: 21 DAYS.
     Route: 042
     Dates: start: 20090406
  2. ASPIRIN [Suspect]
     Route: 065
  3. CARBOPLATIN [Suspect]
     Dosage: AUC 05 OVER 30 MIN ON DAY 01; CYCLE: 21 DAYS
     Route: 042
     Dates: start: 20090406
  4. BEVACIZUMAB [Suspect]
     Dosage: FREQUENCY: OVER 30-90 MIN ON DAY 01; CYCLE: 21 DAYSTOTAL DOSE: 1350 MG
     Route: 042
     Dates: start: 20090406
  5. PACLITAXEL [Suspect]
     Dosage: FREQUENCY: OVER 03 HOURS ON DAY 01; CYCLE: 21 DAYS
     Route: 042
     Dates: start: 20090406

REACTIONS (6)
  - DYSPNOEA [None]
  - ABDOMINAL PAIN [None]
  - CEREBRAL ISCHAEMIA [None]
  - SMALL INTESTINAL OBSTRUCTION [None]
  - GASTRIC HAEMORRHAGE [None]
  - VISION BLURRED [None]
